FAERS Safety Report 5476659-7 (Version None)
Quarter: 2007Q4

REPORT INFORMATION
  Report Type: 
  Country: None (occurrence: None)
  Receive Date: 20071001
  Receipt Date: 20070917
  Transmission Date: 20080405
  Serious: Yes (Hospitalization)
  Sender: FDA-Public Use
  Company Number: 02100-JPN-07-0556

PATIENT
  Age: 50 Year
  Sex: Female

DRUGS (2)
  1. CILOSTAZOL [Suspect]
     Indication: ISCHAEMIC STROKE
     Dosage: ONE OF 200 MG
     Route: 048
     Dates: start: 20070430
  2. CLOPIDOGREL [Suspect]
     Dosage: 75 MG
     Route: 048

REACTIONS (3)
  - CORONARY ARTERY DISEASE [None]
  - ELECTROCARDIOGRAM ST SEGMENT DEPRESSION [None]
  - TROPONIN T INCREASED [None]
